FAERS Safety Report 11214503 (Version 1)
Quarter: 2015Q2

REPORT INFORMATION
  Report Type: Spontaneous
  Country: AU (occurrence: AU)
  Receive Date: 20150624
  Receipt Date: 20150624
  Transmission Date: 20150821
  Serious: Yes (Other)
  Sender: FDA-Public Use
  Company Number: AU-PFIZER INC-2015203065

PATIENT
  Sex: Male

DRUGS (1)
  1. SUTENT [Suspect]
     Active Substance: SUNITINIB MALATE
     Dosage: UNK, CYCLIC, 4 WEEKS ON / 2 WEEKS OFF
     Dates: start: 2007

REACTIONS (1)
  - Ascites [Unknown]

NARRATIVE: CASE EVENT DATE: 2007
